FAERS Safety Report 6543715-1 (Version None)
Quarter: 2010Q1

REPORT INFORMATION
  Report Type: 
  Country: None (occurrence: None)
  Receive Date: 20100119
  Receipt Date: 20100119
  Transmission Date: 20100710
  Serious: No
  Sender: FDA-Public Use
  Company Number: None

PATIENT
  Age: 57 Year
  Sex: Male
  Weight: 81.6475 kg

DRUGS (1)
  1. ZICAM HOMEOPATHIC NASAL GEL ZINCUM GLUCONOCUM 2X GEL TECH [Suspect]
     Indication: UPPER RESPIRATORY TRACT INFECTION
     Dosage: 1 SPRAY IN EACH NOSTRIL EVERY 2-4 HOURS NASAL
     Route: 045
     Dates: start: 20100111, end: 20100111

REACTIONS (5)
  - ANOSMIA [None]
  - EYE IRRITATION [None]
  - HEADACHE [None]
  - NASAL DISCOMFORT [None]
  - PRODUCT QUALITY ISSUE [None]
